FAERS Safety Report 25202350 (Version 1)
Quarter: 2025Q2

REPORT INFORMATION
  Report Type: Spontaneous
  Country: US (occurrence: US)
  Receive Date: 20250416
  Receipt Date: 20250416
  Transmission Date: 20250716
  Serious: No
  Sender: CIPLA
  Company Number: US-CIPLA LTD.-2025US04202

PATIENT

DRUGS (1)
  1. SAJAZIR [Suspect]
     Active Substance: ICATIBANT ACETATE
     Indication: Hereditary angioedema
     Route: 058

REACTIONS (1)
  - Drug ineffective [Unknown]
